FAERS Safety Report 13935011 (Version 1)
Quarter: 2017Q3

REPORT INFORMATION
  Report Type: Spontaneous
  Country: US (occurrence: None)
  Receive Date: 20170901
  Receipt Date: 20170901
  Transmission Date: 20171127
  Serious: Yes (Hospitalization)
  Sender: FDA-Public Use
  Company Number: None

PATIENT
  Age: 66 Year
  Sex: Female

DRUGS (14)
  1. CALCIUM [Concomitant]
     Active Substance: CALCIUM
  2. CELEXA [Concomitant]
     Active Substance: CITALOPRAM HYDROBROMIDE
  3. IBRANCE [Suspect]
     Active Substance: PALBOCICLIB
     Indication: BREAST CANCER FEMALE
     Route: 048
     Dates: start: 20170330
  4. PROTONIX [Concomitant]
     Active Substance: PANTOPRAZOLE SODIUM
  5. VITAMIN D3 [Concomitant]
     Active Substance: CHOLECALCIFEROL
  6. LANTUS [Concomitant]
     Active Substance: INSULIN GLARGINE
  7. NORVASC [Concomitant]
     Active Substance: AMLODIPINE BESYLATE
  8. TYLENOL [Concomitant]
     Active Substance: ACETAMINOPHEN
  9. DULCOLAX NOS [Concomitant]
     Active Substance: BISACODYL OR DOCUSATE SODIUM
  10. MELATONIN [Concomitant]
     Active Substance: MELATONIN
  11. ATIVAN [Concomitant]
     Active Substance: LORAZEPAM
  12. DEXAMETHASON [Concomitant]
     Active Substance: DEXAMETHASONE
  13. KEPPRA [Concomitant]
     Active Substance: LEVETIRACETAM
  14. LETROZOLE. [Concomitant]
     Active Substance: LETROZOLE

REACTIONS (1)
  - Hospitalisation [None]
